FAERS Safety Report 7120866-4 (Version None)
Quarter: 2010Q4

REPORT INFORMATION
  Report Type: 
  Country: None (occurrence: None)
  Receive Date: 20101124
  Receipt Date: 20091119
  Transmission Date: 20110411
  Serious: Yes (Hospitalization)
  Sender: FDA-Public Use
  Company Number: US-PFIZER INC-2009281375

PATIENT
  Sex: Male
  Weight: 115.65 kg

DRUGS (7)
  1. TIKOSYN [Suspect]
     Indication: ATRIAL FIBRILLATION
     Dosage: 500 UG, 1X/DAY
     Route: 048
     Dates: start: 20090701
  2. CARVEDILOL [Concomitant]
  3. LOTREL [Concomitant]
  4. ACETYLSALICYLIC ACID [Concomitant]
  5. LOVAZA [Concomitant]
  6. NYSTATIN [Concomitant]
  7. CRESTOR [Concomitant]

REACTIONS (2)
  - ATRIAL FIBRILLATION [None]
  - HEART RATE DECREASED [None]
